FAERS Safety Report 11615684 (Version 1)
Quarter: 2015Q4

REPORT INFORMATION
  Report Type: Spontaneous
  Country: GB (occurrence: GB)
  Receive Date: 20151009
  Receipt Date: 20151009
  Transmission Date: 20160304
  Serious: Yes (Other)
  Sender: FDA-Public Use
  Company Number: GB-TEVA-598309ACC

PATIENT
  Age: 34 Year
  Sex: Male

DRUGS (1)
  1. METHOTREXATE SODIUM. [Suspect]
     Active Substance: METHOTREXATE SODIUM
     Indication: PSORIASIS

REACTIONS (5)
  - Mental disorder [Unknown]
  - Suicidal ideation [Unknown]
  - Malaise [Unknown]
  - Drug effect incomplete [Unknown]
  - Hangover [Unknown]
